FAERS Safety Report 4515066-8 (Version None)
Quarter: 2004Q4

REPORT INFORMATION
  Report Type: 
  Country: None (occurrence: None)
  Receive Date: 20041201
  Receipt Date: 20041122
  Transmission Date: 20050328
  Serious: Yes (Life-Threatening, Disabling)
  Sender: FDA-Public Use
  Company Number: US-MERCK-0411USA03580

PATIENT
  Age: 39 Year
  Sex: Female

DRUGS (9)
  1. VIOXX [Suspect]
     Indication: PAIN IN EXTREMITY
     Route: 048
     Dates: start: 20010101
  2. VIOXX [Suspect]
     Route: 048
     Dates: start: 20010101
  3. LIPITOR [Concomitant]
     Route: 065
  4. [THERAPY UNSPECIFIED] [Concomitant]
     Route: 065
  5. TOPROL-XL [Concomitant]
     Route: 065
  6. WELLBUTRIN [Concomitant]
     Route: 065
  7. PROZAC [Concomitant]
     Route: 065
  8. [THERAPY UNSPECIFIED] [Concomitant]
     Route: 065
  9. HYDROCODONE HYDROCHLORIDE [Concomitant]
     Route: 065

REACTIONS (5)
  - CHEST DISCOMFORT [None]
  - HYPERTENSION [None]
  - NECK PAIN [None]
  - PAIN IN EXTREMITY [None]
  - VASOCONSTRICTION [None]
